FAERS Safety Report 26170420 (Version 1)
Quarter: 2025Q4

REPORT INFORMATION
  Report Type: Spontaneous
  Country: US (occurrence: US)
  Receive Date: 20251217
  Receipt Date: 20251217
  Transmission Date: 20260117
  Serious: No
  Sender: ARDELYX
  Company Number: US-ARDELYX-2025ARDX007202

PATIENT
  Age: 55 Year
  Sex: Female

DRUGS (4)
  1. XPHOZAH [Suspect]
     Active Substance: TENAPANOR HYDROCHLORIDE
     Indication: Chronic kidney disease
     Dosage: 30 MG, BID
     Route: 048
     Dates: start: 20240726
  2. XPHOZAH [Suspect]
     Active Substance: TENAPANOR HYDROCHLORIDE
     Dosage: 30 MG, BID
     Route: 048
     Dates: start: 202410, end: 20251001
  3. SEVELAMER CARBONATE [Suspect]
     Active Substance: SEVELAMER CARBONATE
     Indication: Hyperphosphataemia
     Dosage: UNK
     Route: 065
     Dates: start: 202302
  4. SEVELAMER CARBONATE [Suspect]
     Active Substance: SEVELAMER CARBONATE
     Dosage: 6 TABS PER DAY, DOSE INCREASED TO 11 TABS PER DAY, CURRENT DOSE WAS 3,6 TABS PER DAY
     Route: 065
     Dates: start: 20230304

REACTIONS (4)
  - Blood phosphorus decreased [Recovered/Resolved]
  - Insurance issue [Unknown]
  - Product use issue [Unknown]
  - Therapy interrupted [Unknown]

NARRATIVE: CASE EVENT DATE: 20250801
